FAERS Safety Report 10219661 (Version 2)
Quarter: 2014Q2

REPORT INFORMATION
  Report Type: Spontaneous
  Country: FR (occurrence: FR)
  Receive Date: 20140605
  Receipt Date: 20140611
  Transmission Date: 20141212
  Serious: Yes (Death, Hospitalization, Other)
  Sender: FDA-Public Use
  Company Number: FR-PFIZER INC-2014152280

PATIENT
  Age: 77 Year
  Sex: Female

DRUGS (12)
  1. EFFEXOR [Suspect]
     Dosage: 2 TABLETS OF 75 MG, 1X/DAY
     Route: 048
  2. CORDARONE [Suspect]
     Dosage: 200 MG, 1X/DAY
     Route: 048
     Dates: start: 20140415, end: 20140425
  3. XARELTO [Suspect]
     Dosage: 20 MG, 1X/DAY
     Route: 048
     Dates: start: 20140415, end: 20140425
  4. TAHOR [Concomitant]
     Dosage: 10 MG, UNK
  5. ALDACTONE [Concomitant]
     Dosage: 25 MG, UNK
  6. FUROSEMIDE [Concomitant]
     Dosage: UNK
  7. SERESTA [Concomitant]
     Dosage: 50 MG, UNK
  8. ZOLPIDEM TARTRATE [Concomitant]
     Dosage: UNK
  9. RILMENIDINE DIHYDROGEN PHOSPHATE [Concomitant]
     Dosage: UNK
  10. OLMETEC [Concomitant]
     Dosage: 40 MG, UNK
  11. LOXEN LP [Concomitant]
     Dosage: 50 MG, UNK
  12. TRANSIPEG [Concomitant]
     Dosage: UNK

REACTIONS (4)
  - Gastrointestinal haemorrhage [Fatal]
  - Shock haemorrhagic [Fatal]
  - Fall [Unknown]
  - Atrial fibrillation [Unknown]
